FAERS Safety Report 7835519-4 (Version None)
Quarter: 2011Q4

REPORT INFORMATION
  Report Type: 
  Country: None (occurrence: None)
  Receive Date: 20111024
  Receipt Date: 20111012
  Transmission Date: 20120403
  Serious: Yes (Disabling, Other)
  Sender: FDA-Public Use
  Company Number: PHHY2011JP51953

PATIENT
  Sex: Male
  Weight: 60 kg

DRUGS (10)
  1. RABEPRAZOLE SODIUM [Concomitant]
     Indication: PROPHYLAXIS AGAINST GASTROINTESTINAL ULCER
     Dosage: 1 DF,
     Route: 048
     Dates: start: 20050129
  2. SANDIMMUNE [Concomitant]
     Indication: RENAL TRANSPLANT
     Dosage: 125 MG,
     Route: 042
     Dates: start: 20050128, end: 20050130
  3. SIMULECT [Suspect]
     Dosage: 20 MG,
     Route: 042
     Dates: start: 20050131, end: 20050201
  4. PREDNISOLONE [Suspect]
     Indication: RENAL TRANSPLANT
     Route: 048
     Dates: start: 20050128
  5. SOLU-MEDROL [Concomitant]
     Dosage: 500 MG,
     Route: 042
     Dates: start: 20050128, end: 20050128
  6. NEORAL [Suspect]
     Indication: RENAL TRANSPLANT
     Route: 048
     Dates: start: 20050130, end: 20050309
  7. MYCOPHENOLATE MOFETIL (CELLCEPT) [Suspect]
     Dates: start: 20050128, end: 20050302
  8. HERBESSOR R [Concomitant]
     Indication: ISCHAEMIC HEART DISEASE PROPHYLAXIS
     Dosage: 100 MG,
     Route: 048
     Dates: start: 20050128
  9. SIMULECT [Suspect]
     Indication: RENAL TRANSPLANT
     Dosage: 20 MG,
     Route: 042
     Dates: start: 20050128, end: 20050128
  10. SIGMART [Concomitant]
     Indication: ISCHAEMIC HEART DISEASE PROPHYLAXIS
     Dosage: 15 MG,
     Route: 048
     Dates: start: 20050128

REACTIONS (5)
  - OLIGURIA [None]
  - CHOLECYSTITIS ACUTE [None]
  - KIDNEY TRANSPLANT REJECTION [None]
  - ABDOMINAL PAIN [None]
  - PYREXIA [None]
